FAERS Safety Report 9186931 (Version 1)
Quarter: 2013Q1

REPORT INFORMATION
  Report Type: Spontaneous
  Country: CH (occurrence: CH)
  Receive Date: 20130325
  Receipt Date: 20130325
  Transmission Date: 20140127
  Serious: Yes (Hospitalization, Congenital Anomaly)
  Sender: FDA-Public Use
  Company Number: CH-VIIV HEALTHCARE LIMITED-B0841749A

PATIENT
  Age: 0 None
  Sex: Male

DRUGS (4)
  1. TRIZIVIR [Suspect]
     Indication: ASYMPTOMATIC HIV INFECTION
     Route: 064
     Dates: start: 2010, end: 20120228
  2. TRUVADA [Suspect]
     Indication: ASYMPTOMATIC HIV INFECTION
     Route: 064
     Dates: start: 20120229, end: 20121002
  3. KALETRA [Suspect]
     Indication: ASYMPTOMATIC HIV INFECTION
     Route: 064
     Dates: start: 20120229, end: 20121002
  4. PODOMEXEF [Suspect]
     Indication: BACTERIAL INFECTION
     Dosage: 200MG TWICE PER DAY
     Route: 064

REACTIONS (11)
  - Apgar score low [Recovered/Resolved]
  - Neonatal asphyxia [Recovered/Resolved]
  - Lactic acidosis [Recovered/Resolved]
  - Renal impairment [Recovering/Resolving]
  - Congenital hearing disorder [Not Recovered/Not Resolved]
  - Cytogenetic abnormality [Not Recovered/Not Resolved]
  - Renal aplasia [Not Recovered/Not Resolved]
  - Small for dates baby [Unknown]
  - Dysmorphism [Not Recovered/Not Resolved]
  - Torticollis [Unknown]
  - Foetal exposure during pregnancy [Recovered/Resolved]
